FAERS Safety Report 8851724 (Version 2)
Quarter: 2012Q4

REPORT INFORMATION
  Report Type: Spontaneous
  Country: US (occurrence: None)
  Receive Date: 20121017
  Receipt Date: 20121024
  Transmission Date: 20130627
  Serious: Yes (Hospitalization)
  Sender: FDA-Public Use
  Company Number: 2012-1041

PATIENT
  Age: 56 Year
  Sex: Female

DRUGS (14)
  1. KYPROLIS [Suspect]
     Indication: MULTIPLE MYELOMA
     Dosage: 11.4286 mg (40 mg, 2 in 1 wk)
     Route: 042
     Dates: start: 20120829, end: 20121004
  2. PROTONIX [Concomitant]
  3. SYNTHROID (LEVOTHYROXINE SODIUM) (LEVOTHYROXINE SODIUM) [Concomitant]
  4. NEURONTIN (GABAPENTIN) (GABAPENTIN) [Concomitant]
  5. ANTIVERT (MECLOZINE HYDROCHLORIDE) (MECLOZINE HYDROCHLORIDE) [Concomitant]
  6. BENTYL (DICYCLOVERINE HYDROCHLORIDE) (DICYCLOVERINE HYDROCHLORIDE) [Concomitant]
  7. ZOFRAN (ONDANSETRON) (ONDANSETRON) [Concomitant]
  8. CYMBALTA (DULOXETINE HYDROCHLORIDE) (DULOXETINE HYDROCHLORIDE) [Concomitant]
  9. VALACYCLOVIR (VALACICLOVIR) (VALACICLOVIR) [Concomitant]
  10. HYDROCHLOROTHIAZIDE (HYDROCHLOROTHIAZIDE) (HYDROCHLOROTHIAZIDE) [Concomitant]
  11. POTASSIUM (POTASSIUM) (POTASSIUM) [Concomitant]
  12. METHYLPREDNISON (METHYLPREDNISOLONE) (METHYLPREDNISOLONE) [Concomitant]
  13. CYTOXAN (CYCLOPHOSPHAMIDE) (CYCLOPHOSPHAMIDE) [Concomitant]
  14. VELCADE (BORTEZOMIB) (BORTEZOMIB) [Concomitant]

REACTIONS (2)
  - Pancreatitis acute [None]
  - Aspartate aminotransferase increased [None]
